FAERS Safety Report 9688443 (Version 1)
Quarter: 2013Q4

REPORT INFORMATION
  Report Type: Spontaneous
  Country: US (occurrence: None)
  Receive Date: 20131112
  Receipt Date: 20131112
  Transmission Date: 20140711
  Serious: Yes (Other)
  Sender: FDA-Public Use
  Company Number: IPC201311-000447

PATIENT
  Age: 80 Year
  Sex: Female
  Weight: 104 kg

DRUGS (4)
  1. METFORMIN HYDROCHLORIDE (METFORMIN HYDROCHLORIDE) (METFORMIN HYDROCHLORIDE) [Suspect]
     Indication: DIABETES MELLITUS
  2. PANTOPRAZOLE (PANTOPRAZOLE) (PANTOPRAZOLE) [Suspect]
     Indication: GASTROOESOPHAGEAL REFLUX DISEASE
     Dates: start: 201310
  3. LANTUS (INSULIN GLARGINE) (INSULIN GLARGINE) [Suspect]
     Indication: DIABETES MELLITUS
     Dosage: 50IU DAILY AT NIGHT
  4. GLIMEPIRIDE (GLIMEPIRIDE) (GLIMEPIRIDE) [Suspect]
     Indication: DIABETES MELLITUS
     Dosage: 4MG, ONCE DAILY

REACTIONS (2)
  - Hypertension [None]
  - Blood glucose increased [None]
